FAERS Safety Report 20140947 (Version 1)
Quarter: 2021Q4

REPORT INFORMATION
  Report Type: Spontaneous
  Country: CN (occurrence: CN)
  Receive Date: 20211202
  Receipt Date: 20211202
  Transmission Date: 20220303
  Serious: Yes (Hospitalization)
  Sender: FDA-Public Use
  Company Number: CN-009507513-2111CHN010405

PATIENT
  Age: 76 Year
  Sex: Male
  Weight: 50 kg

DRUGS (3)
  1. KEYTRUDA [Suspect]
     Active Substance: PEMBROLIZUMAB
     Indication: Chemotherapy
     Dosage: 100 MG, ONCE
     Route: 041
     Dates: start: 20211014, end: 20211014
  2. CELECOXIB [Suspect]
     Active Substance: CELECOXIB
     Indication: Pain
     Dosage: 0.2 G, BID
     Route: 048
     Dates: start: 20211009, end: 20211015
  3. SODIUM CHLORIDE [Concomitant]
     Active Substance: SODIUM CHLORIDE
     Indication: Medication dilution
     Dosage: 50 ML, ONCE
     Route: 041
     Dates: start: 20211014, end: 20211014

REACTIONS (3)
  - Blood creatinine increased [Recovering/Resolving]
  - Underdose [Unknown]
  - Product use in unapproved indication [Unknown]

NARRATIVE: CASE EVENT DATE: 20211014
